FAERS Safety Report 8044773-8 (Version None)
Quarter: 2012Q1

REPORT INFORMATION
  Report Type: 
  Country: None (occurrence: None)
  Receive Date: 20120113
  Receipt Date: 20111229
  Transmission Date: 20120608
  Serious: Yes (Death, Hospitalization)
  Sender: FDA-Public Use
  Company Number: FR-CELGENEUS-056-50794-09041409

PATIENT
  Sex: Male
  Weight: 92 kg

DRUGS (11)
  1. RAMIPRIL [Concomitant]
     Indication: HYPERTENSION
     Dosage: 2.5 MILLIGRAM
     Route: 048
     Dates: start: 20080811, end: 20081023
  2. FOLIC ACID [Concomitant]
     Indication: INFECTION PROPHYLAXIS
     Dosage: 20 MILLIGRAM
     Route: 048
     Dates: start: 20080905, end: 20081023
  3. ZOLPIDEM [Concomitant]
     Indication: INSOMNIA
     Dosage: 10 MILLIGRAM
     Route: 048
     Dates: start: 20080905, end: 20081023
  4. VFEND [Concomitant]
     Route: 065
  5. VIDAZA [Suspect]
     Indication: MYELODYSPLASTIC SYNDROME
     Dosage: 120 MILLIGRAM
     Route: 058
     Dates: start: 20080929, end: 20081003
  6. VIDAZA [Suspect]
     Indication: REFRACTORY ANAEMIA WITH AN EXCESS OF BLASTS
  7. VORICONAZOLE [Concomitant]
     Dosage: 400 MILLIGRAM
     Route: 048
     Dates: start: 20080904, end: 20080928
  8. VALACYCLOVIR HYDROCHLORIDE [Concomitant]
     Indication: INFECTION PROPHYLAXIS
     Dosage: 1000 MILLIGRAM
     Route: 048
     Dates: start: 20080929, end: 20081023
  9. EFFEXOR [Concomitant]
     Dosage: 37.5 MILLIGRAM
     Route: 048
     Dates: start: 20080904, end: 20081023
  10. BACTRIM [Concomitant]
     Indication: PROPHYLAXIS
     Dosage: 1 TABLET
     Route: 048
     Dates: start: 20080811, end: 20081023
  11. LASIX [Concomitant]
     Indication: HYPERTENSION
     Dosage: 20 MILLIGRAM
     Route: 048
     Dates: start: 20080929, end: 20081023

REACTIONS (3)
  - SEPSIS [None]
  - PERITONEAL HAEMORRHAGE [None]
  - THROMBOCYTOPENIA [None]
